FAERS Safety Report 16562096 (Version 1)
Quarter: 2019Q3

REPORT INFORMATION
  Report Type: Spontaneous
  Country: FR (occurrence: FR)
  Receive Date: 20190711
  Receipt Date: 20190711
  Transmission Date: 20191004
  Serious: Yes (Hospitalization)
  Sender: FDA-Public Use
  Company Number: FR-ASTRAZENECA-2019SE98450

PATIENT
  Age: 46 Year
  Sex: Female
  Weight: 73 kg

DRUGS (4)
  1. XEROQUEL LP [Suspect]
     Active Substance: QUETIAPINE FUMARATE
     Indication: BEHAVIOUR DISORDER
     Route: 048
     Dates: start: 20190421, end: 20190603
  2. LITHIUM. [Suspect]
     Active Substance: LITHIUM
     Indication: BEHAVIOUR DISORDER
     Route: 048
     Dates: start: 20190418, end: 20190603
  3. ZOPICLONE [Suspect]
     Active Substance: ZOPICLONE
     Indication: BEHAVIOUR DISORDER
     Route: 048
     Dates: start: 20190426, end: 20190603
  4. SERESTA [Suspect]
     Active Substance: OXAZEPAM
     Indication: BEHAVIOUR DISORDER
     Route: 048
     Dates: start: 20190517, end: 20190603

REACTIONS (2)
  - Eosinophilia [Recovering/Resolving]
  - Rash maculo-papular [Recovered/Resolved]

NARRATIVE: CASE EVENT DATE: 20190525
